FAERS Safety Report 4749669-2 (Version None)
Quarter: 2005Q3

REPORT INFORMATION
  Report Type: 
  Country: None (occurrence: None)
  Receive Date: 20050822
  Receipt Date: 20050810
  Transmission Date: 20060218
  Serious: Yes (Death, Hospitalization)
  Sender: FDA-Public Use
  Company Number: US-ROCHE-414008

PATIENT
  Sex: Male
  Weight: 36.3 kg

DRUGS (1)
  1. XELODA [Suspect]
     Route: 048

REACTIONS (4)
  - COLON CANCER METASTATIC [None]
  - DRUG ADMINISTRATION ERROR [None]
  - HAEMORRHAGE [None]
  - RASH MACULAR [None]
